FAERS Safety Report 13954704 (Version 1)
Quarter: 2017Q3

REPORT INFORMATION
  Report Type: Spontaneous
  Country: US (occurrence: US)
  Receive Date: 20170910
  Receipt Date: 20170910
  Transmission Date: 20171128
  Serious: Yes (Disabling)
  Sender: FDA-Public Use
  Company Number: None

PATIENT
  Age: 50 Year
  Sex: Female
  Weight: 69.75 kg

DRUGS (13)
  1. VALTREX [Concomitant]
     Active Substance: VALACYCLOVIR HYDROCHLORIDE
  2. COENZYME Q10 [Concomitant]
     Active Substance: UBIDECARENONE
  3. RISPERADONE [Concomitant]
     Active Substance: RISPERIDONE
  4. FISH OIL [Concomitant]
     Active Substance: FISH OIL
  5. VITAMIN D [Concomitant]
     Active Substance: CHOLECALCIFEROL
  6. VITAMIN C [Concomitant]
     Active Substance: ASCORBIC ACID
  7. GADAVIST [Suspect]
     Active Substance: GADOBUTROL
     Indication: NUCLEAR MAGNETIC RESONANCE IMAGING
     Dosage: ?          OTHER FREQUENCY:PRN FOR TESTING;?
     Route: 042
     Dates: start: 20140312, end: 20170305
  8. DOTAREM [Suspect]
     Active Substance: GADOTERATE MEGLUMINE
  9. ISOVUE [Suspect]
     Active Substance: IOPAMIDOL
  10. SYNTHROID [Concomitant]
     Active Substance: LEVOTHYROXINE SODIUM
  11. ATENOLOL. [Concomitant]
     Active Substance: ATENOLOL
  12. MELATONIN [Concomitant]
     Active Substance: MELATONIN
  13. MAGNEVIST [Suspect]
     Active Substance: GADOPENTETATE DIMEGLUMINE

REACTIONS (11)
  - Muscle twitching [None]
  - Hypoaesthesia [None]
  - Paraesthesia [None]
  - Bedridden [None]
  - Burning sensation [None]
  - Hot flush [None]
  - Pain [None]
  - Alopecia [None]
  - Impaired quality of life [None]
  - Toxicity to various agents [None]
  - Myalgia [None]

NARRATIVE: CASE EVENT DATE: 20170305
